FAERS Safety Report 7292848-3 (Version None)
Quarter: 2011Q1

REPORT INFORMATION
  Report Type: 
  Country: None (occurrence: None)
  Receive Date: 20110203
  Receipt Date: 20110124
  Transmission Date: 20110831
  Serious: Yes (Hospitalization, Other)
  Sender: FDA-Public Use
  Company Number: 024866

PATIENT
  Sex: Female

DRUGS (3)
  1. LACOSAMIDE [Suspect]
     Indication: EPILEPSY
     Dosage: 100 MG BID ORAL
     Route: 048
     Dates: start: 20091101, end: 20100201
  2. LAMICTAL [Concomitant]
  3. TEGRETOL [Concomitant]

REACTIONS (5)
  - PSYCHOTIC DISORDER [None]
  - DRUG INEFFECTIVE [None]
  - COMPLEX PARTIAL SEIZURES [None]
  - PARANOIA [None]
  - CONDITION AGGRAVATED [None]
